FAERS Safety Report 8135188 (Version 3)
Quarter: 2013Q1

REPORT INFORMATION
  Report Type: Spontaneous
  Country: DK (occurrence: DK)
  Receive Date: 20110914
  Receipt Date: 20130115
  Transmission Date: 20140127
  Serious: Yes (Death, Life-Threatening, Hospitalization)
  Sender: FDA-Public Use
  Company Number: DK-PFIZER INC-2011211735

PATIENT
  Age: 70 Year
  Sex: Female
  Weight: 52 kg

DRUGS (6)
  1. SUTENT [Suspect]
     Indication: RENAL CANCER METASTATIC
     Dosage: 50 MG, DAILY FOR 4 WKS 14 DAYS PAUSE
     Route: 048
     Dates: start: 20110720, end: 20110814
  2. METFORMIN [Concomitant]
     Indication: DIABETES MELLITUS
     Dosage: 500 MG, 2X/DAY
     Route: 048
     Dates: end: 20110814
  3. CORODIL [Concomitant]
     Indication: HYPERTENSION
     Dosage: 5 MG, 1X/DAY
  4. CORODIL [Concomitant]
     Dosage: 10 MG, 1X/DAY
     Dates: start: 20110804
  5. CORODIL [Concomitant]
     Dosage: 20 MG, 1X/DAY
     Dates: end: 20110814
  6. FEMANOR [Concomitant]
     Indication: HORMONE REPLACEMENT THERAPY
     Dosage: STRENGHT: 1+2 MG
     Route: 048
     Dates: end: 20110814

REACTIONS (4)
  - Acute disseminated encephalomyelitis [Recovering/Resolving]
  - Coma [Recovered/Resolved]
  - Disease progression [Fatal]
  - Renal cancer metastatic [Fatal]
